FAERS Safety Report 16801302 (Version 1)
Quarter: 2019Q3

REPORT INFORMATION
  Report Type: Spontaneous
  Country: US (occurrence: US)
  Receive Date: 20190912
  Receipt Date: 20190912
  Transmission Date: 20191005
  Serious: No
  Sender: FDA-Public Use
  Company Number: US-VERTEX PHARMACEUTICALS-2019-008646

PATIENT
  Sex: Female

DRUGS (9)
  1. IBUPROFEN FOR CHILDREN [Concomitant]
  2. ORKAMBI [Suspect]
     Active Substance: IVACAFTOR\LUMACAFTOR
     Indication: CYSTIC FIBROSIS
     Dosage: 1 PACKET, BID WITH FAT CONTAINING FOOD
     Route: 048
     Dates: start: 201907
  3. PHYTONADIONE. [Concomitant]
     Active Substance: PHYTONADIONE
  4. CHILDREN^S ACETAMINOPHEN [Concomitant]
     Active Substance: ACETAMINOPHEN
  5. PROVENTIL HFA [SALBUTAMOL] [Concomitant]
  6. ONDANSETRON [Concomitant]
     Active Substance: ONDANSETRON
  7. VITAMIN D3 [Concomitant]
     Active Substance: CHOLECALCIFEROL
  8. CREON [Concomitant]
     Active Substance: PANCRELIPASE AMYLASE\PANCRELIPASE LIPASE\PANCRELIPASE PROTEASE
  9. PULMOZYME [Concomitant]
     Active Substance: DORNASE ALFA

REACTIONS (1)
  - Weight abnormal [Unknown]

NARRATIVE: CASE EVENT DATE: 2019
